FAERS Safety Report 6969934-8 (Version None)
Quarter: 2010Q3

REPORT INFORMATION
  Report Type: 
  Country: None (occurrence: None)
  Receive Date: 20100823
  Receipt Date: 20100527
  Transmission Date: 20110219
  Serious: No
  Sender: FDA-Public Use
  Company Number: 012705

PATIENT
  Sex: Male

DRUGS (1)
  1. CIMZIA [Suspect]
     Indication: CROHN'S DISEASE
     Dosage: 400Q MONTHLY SUBCUTANEOUS
     Route: 058

REACTIONS (2)
  - DYSPHONIA [None]
  - PRURITUS [None]
